FAERS Safety Report 21825055 (Version 2)
Quarter: 2023Q1

REPORT INFORMATION
  Report Type: Spontaneous
  Country: US (occurrence: US)
  Receive Date: 20230105
  Receipt Date: 20230118
  Transmission Date: 20230418
  Serious: Yes (Other)
  Sender: FDA-Public Use
  Company Number: US-TEVA-2022-US-2841390

PATIENT
  Age: 24 Year
  Sex: Male

DRUGS (9)
  1. IFOSFAMIDE [Suspect]
     Active Substance: IFOSFAMIDE
     Indication: Bone giant cell tumour malignant
     Dosage: THE PATIENT RECEIVED ONE CYCLE OF HIGH-DOSE IFOSFAMIDE
     Route: 065
  2. VINCRISTINE [Suspect]
     Active Substance: VINCRISTINE
     Indication: Bone giant cell tumour malignant
     Route: 065
  3. IRINOTECAN [Suspect]
     Active Substance: IRINOTECAN
     Indication: Bone giant cell tumour malignant
     Route: 065
  4. DENOSUMAB [Suspect]
     Active Substance: DENOSUMAB
     Indication: Bone giant cell tumour malignant
     Route: 065
  5. TEMOZOLOMIDE [Suspect]
     Active Substance: TEMOZOLOMIDE
     Indication: Bone giant cell tumour malignant
     Route: 065
  6. CABOZANTINIB [Suspect]
     Active Substance: CABOZANTINIB
     Indication: Bone giant cell tumour malignant
     Route: 065
  7. CISPLATIN [Concomitant]
     Active Substance: CISPLATIN
     Indication: Bone giant cell tumour malignant
     Route: 065
  8. METHOTREXATE [Concomitant]
     Active Substance: METHOTREXATE
     Indication: Bone giant cell tumour malignant
     Dosage: THE PATIENT RECEIVED HIGH-DOSE METHOTREXATE
     Route: 065
  9. DOXORUBICIN [Concomitant]
     Active Substance: DOXORUBICIN
     Indication: Bone giant cell tumour malignant
     Route: 065

REACTIONS (2)
  - Acute kidney injury [Unknown]
  - Drug ineffective [Unknown]
